FAERS Safety Report 9110718 (Version 1)
Quarter: 2013Q1

REPORT INFORMATION
  Report Type: Spontaneous
  Country: US (occurrence: US)
  Receive Date: 20130219
  Receipt Date: 20130219
  Transmission Date: 20140127
  Serious: No
  Sender: FDA-Public Use
  Company Number: US-BRISTOL-MYERS SQUIBB COMPANY-17027012

PATIENT
  Age: 50 Year
  Sex: Male
  Weight: 92.97 kg

DRUGS (11)
  1. ORENCIA [Suspect]
     Indication: RHEUMATOID ARTHRITIS
     Dosage: 2010:250MG/MONTHIV,1000MG Q4 WEEKS,05OCT2012: 125 MG SUBQ WAS TAKEN/WEEK
     Route: 042
     Dates: start: 2010, end: 20121005
  2. FLOVENT [Concomitant]
  3. METHOTREXATE [Concomitant]
  4. PROAIR HFA [Concomitant]
  5. CLOBETASOL [Concomitant]
  6. UREA [Concomitant]
  7. TRIAMCINOLONE [Concomitant]
  8. KETOCONAZOLE [Concomitant]
  9. ZYRTEC [Concomitant]
  10. FOLIC ACID [Concomitant]
  11. PRILOSEC [Concomitant]

REACTIONS (1)
  - Psoriasis [Not Recovered/Not Resolved]
